FAERS Safety Report 16817819 (Version 1)
Quarter: 2019Q3

REPORT INFORMATION
  Report Type: Report from Study
  Country: US (occurrence: US)
  Receive Date: 20190917
  Receipt Date: 20190917
  Transmission Date: 20191005
  Serious: Yes (Other)
  Sender: FDA-Public Use
  Company Number: US-009507513-1907USA001156

PATIENT
  Age: 66 Year
  Sex: Female

DRUGS (17)
  1. PEMBROLIZUMAB. [Suspect]
     Active Substance: PEMBROLIZUMAB
     Indication: MICROSATELLITE INSTABILITY CANCER
     Dosage: ROUTE OF ADMINISTRATION REPORTED AS PORT; UNK, Q3W
     Dates: start: 20190617
  2. GABAPENTIN. [Suspect]
     Active Substance: GABAPENTIN
     Indication: SCAR PAIN
     Dosage: 3 DOSAGE FORM, QD
     Route: 048
  3. GABAPENTIN. [Suspect]
     Active Substance: GABAPENTIN
     Indication: PAIN IN EXTREMITY
     Dosage: 1 DOSAGE FORM, QD
     Route: 048
  4. MONTELUKAST [Concomitant]
     Active Substance: MONTELUKAST SODIUM
     Indication: ASTHMA
     Dosage: 10 MG DAILY
  5. HYZAAR [Suspect]
     Active Substance: HYDROCHLOROTHIAZIDE\LOSARTAN POTASSIUM
     Indication: BLOOD PRESSURE ABNORMAL
     Dosage: 1 PILL, UNKNOWN
     Route: 048
     Dates: start: 20190603
  6. COZAAR [Suspect]
     Active Substance: LOSARTAN POTASSIUM
     Dosage: 25 MG DAILY
     Route: 048
     Dates: start: 201906
  7. OXYCODONE [Concomitant]
     Active Substance: OXYCODONE
     Dosage: EVERY 6 HOURS THIS DAY
     Dates: start: 20190726, end: 20190726
  8. CALCIUM (UNSPECIFIED) [Concomitant]
     Active Substance: CALCIUM
     Dosage: 600 MG TWICE DAILY
  9. TYLENOL [Concomitant]
     Active Substance: ACETAMINOPHEN
     Indication: ARTHRALGIA
     Dosage: 2 PILLS (ALSO REPORTED AS UNSPECIFIED DOSE), QAM
     Route: 048
  10. IRON (UNSPECIFIED) [Concomitant]
     Active Substance: IRON
     Dosage: UNK
  11. TRAMADOL HYDROCHLORIDE. [Concomitant]
     Active Substance: TRAMADOL HYDROCHLORIDE
     Indication: PAIN IN EXTREMITY
     Dosage: UNSPECIFIED DOSE, QD
     Route: 048
  12. ALPRAZOLAM. [Concomitant]
     Active Substance: ALPRAZOLAM
     Indication: ANXIETY
     Dosage: 0.5 MG AT BEDTIME
  13. SUCRALFATE. [Concomitant]
     Active Substance: SUCRALFATE
     Dosage: UNK
  14. TRAMADOL HYDROCHLORIDE. [Concomitant]
     Active Substance: TRAMADOL HYDROCHLORIDE
     Indication: ABDOMINAL PAIN
     Dosage: UNSPECIFIED DOSE, BID
     Route: 048
  15. TYLENOL [Concomitant]
     Active Substance: ACETAMINOPHEN
     Dosage: EXTRA-STRENGTH, AS NEEDED FOR PAIN
  16. OXYCODONE [Concomitant]
     Active Substance: OXYCODONE
     Indication: PAIN
     Dosage: UNSPECIFIED DOSE, PRN
     Route: 048
  17. PANTOPRAZOLE [Concomitant]
     Active Substance: PANTOPRAZOLE
     Dosage: 40 MG DAILY

REACTIONS (29)
  - Movement disorder [Not Recovered/Not Resolved]
  - Change of bowel habit [Unknown]
  - Nausea [Recovering/Resolving]
  - Product dose omission [Unknown]
  - Procedural pain [Unknown]
  - Vomiting [Recovering/Resolving]
  - Nausea [Unknown]
  - Pain [Unknown]
  - Pain in extremity [Unknown]
  - Vitamin D decreased [Unknown]
  - Disturbance in attention [Unknown]
  - Blood potassium abnormal [Unknown]
  - Dizziness [Unknown]
  - Tearfulness [Unknown]
  - Feeling abnormal [Unknown]
  - Fatigue [Unknown]
  - Abdominal pain [Unknown]
  - Arthralgia [Unknown]
  - Hepatic neoplasm [Unknown]
  - Constipation [Unknown]
  - Malaise [Unknown]
  - Tooth disorder [Unknown]
  - Apathy [Unknown]
  - Gastrooesophageal reflux disease [Unknown]
  - Decreased activity [Unknown]
  - Procedural pain [Unknown]
  - Pain in extremity [Unknown]
  - Hypertension [Unknown]
  - Swelling [Unknown]

NARRATIVE: CASE EVENT DATE: 2019
